FAERS Safety Report 6226233-X (Version None)
Quarter: 2009Q2

REPORT INFORMATION
  Report Type: 
  Country: None (occurrence: None)
  Receive Date: 20090612
  Receipt Date: 20090511
  Transmission Date: 20091009
  Serious: No
  Sender: FDA-Public Use
  Company Number: US-ABBOTT-09P-163-0572908-00

PATIENT
  Sex: Female
  Weight: 68.1 kg

DRUGS (8)
  1. HUMIRA [Suspect]
     Indication: PSORIATIC ARTHROPATHY
     Route: 058
     Dates: start: 20090201
  2. HUMIRA [Suspect]
     Indication: FIBROMYALGIA
  3. HUMIRA [Suspect]
     Indication: INFLAMMATION
  4. UNKNOWN HERBAL MIX [Concomitant]
     Indication: STOMATITIS
     Dates: start: 20090510
  5. TOPROL-XL [Concomitant]
     Indication: BLOOD PRESSURE FLUCTUATION
  6. HYDROCHLOROTHIAZIDE [Concomitant]
     Indication: BLOOD PRESSURE FLUCTUATION
  7. LEVOTHYROXINE [Concomitant]
     Indication: HYPOTHYROIDISM
  8. DICLOFENAC SODIUM [Concomitant]
     Indication: INFLAMMATION

REACTIONS (2)
  - GLOSSODYNIA [None]
  - STOMATITIS [None]
